FAERS Safety Report 5131219-2 (Version None)
Quarter: 2006Q4

REPORT INFORMATION
  Report Type: 
  Country: None (occurrence: None)
  Receive Date: 20061020
  Receipt Date: 20061009
  Transmission Date: 20070319
  Serious: Yes (Other)
  Sender: FDA-Public Use
  Company Number: FR-JNJFOC-20060204714

PATIENT
  Sex: Female
  Weight: 57 kg

DRUGS (4)
  1. EPITOMAX [Suspect]
     Route: 048
  2. EPITOMAX [Suspect]
     Indication: MIGRAINE PROPHYLAXIS
     Route: 048
  3. ALMOTRIPTAN MALATE [Concomitant]
     Route: 065
  4. PROXALYOC [Concomitant]
     Indication: MIGRAINE
     Route: 065

REACTIONS (2)
  - FAT NECROSIS [None]
  - SKIN NECROSIS [None]
